FAERS Safety Report 16672921 (Version 1)
Quarter: 2019Q3

REPORT INFORMATION
  Report Type: Spontaneous
  Country: US (occurrence: US)
  Receive Date: 20190806
  Receipt Date: 20190806
  Transmission Date: 20191004
  Serious: No
  Sender: FDA-Public Use
  Company Number: PHEH2019US032177

PATIENT
  Sex: Female

DRUGS (1)
  1. COSENTYX [Suspect]
     Active Substance: SECUKINUMAB
     Indication: ARTHRITIS
     Dosage: UNK
     Route: 058
     Dates: start: 20180719

REACTIONS (5)
  - Arthralgia [Unknown]
  - Product use in unapproved indication [Unknown]
  - Joint stiffness [Unknown]
  - Arthritis [Unknown]
  - Musculoskeletal stiffness [Unknown]
